FAERS Safety Report 9984110 (Version 1)
Quarter: 2014Q1

REPORT INFORMATION
  Report Type: Report from Study
  Country: US (occurrence: US)
  Receive Date: 20140307
  Receipt Date: 20140307
  Transmission Date: 20141002
  Serious: No
  Sender: FDA-Public Use
  Company Number: US-ABBVIE-13P-163-1182444-00

PATIENT
  Age: 79 Year
  Sex: Female

DRUGS (5)
  1. HUMIRA [Suspect]
     Indication: RHEUMATOID ARTHRITIS
     Dates: start: 20131104
  2. CADUET [Concomitant]
     Indication: HYPERTENSION
  3. MEDICATION FOR REFLUX [Concomitant]
     Indication: GASTROOESOPHAGEAL REFLUX DISEASE
  4. B12 [Concomitant]
     Indication: VITAMIN B12 DEFICIENCY
  5. EPI-PEN [Concomitant]
     Indication: HYPERSENSITIVITY

REACTIONS (4)
  - Injection site pain [Recovering/Resolving]
  - Rash macular [Unknown]
  - Injection site pruritus [Unknown]
  - Injection site swelling [Unknown]
